FAERS Safety Report 19805054 (Version 1)
Quarter: 2021Q3

REPORT INFORMATION
  Report Type: Report from Study
  Country: None (occurrence: US)
  Receive Date: 20210908
  Receipt Date: 20210908
  Transmission Date: 20211014
  Serious: Yes (Other)
  Sender: FDA-Public Use
  Company Number: US-ABBVIE-21K-163-4070450-00

PATIENT
  Sex: Male

DRUGS (4)
  1. COVID?19 VACCINE [Concomitant]
     Indication: COVID-19 IMMUNISATION
     Dosage: PFIZER/BIONTECH?1ST DOSE
     Route: 030
     Dates: start: 202012, end: 202012
  2. COVID?19 VACCINE [Concomitant]
     Dosage: PFIZER/BIONTECH?2ND DOSE
     Route: 030
     Dates: start: 202101, end: 202101
  3. HUMIRA [Suspect]
     Active Substance: ADALIMUMAB
     Indication: PSORIATIC ARTHROPATHY
     Dosage: CF
     Route: 058
  4. HUMIRA [Suspect]
     Active Substance: ADALIMUMAB
     Indication: PSORIASIS

REACTIONS (1)
  - Umbilical hernia [Recovered/Resolved]
